FAERS Safety Report 7171145-0 (Version None)
Quarter: 2010Q4

REPORT INFORMATION
  Report Type: 
  Country: None (occurrence: None)
  Receive Date: 20101217
  Receipt Date: 20101206
  Transmission Date: 20110411
  Serious: Yes (Hospitalization)
  Sender: FDA-Public Use
  Company Number: US-PFIZER INC-US-WYE-H17249910

PATIENT
  Sex: Female

DRUGS (3)
  1. PRISTIQ [Suspect]
     Indication: DEPRESSION
     Dosage: 50 MG, 1X/DAY
     Route: 048
     Dates: start: 20100501
  2. SOLU-MEDROL [Suspect]
     Indication: COLITIS ULCERATIVE
     Dosage: UNK
     Route: 065
  3. PREDNISONE [Suspect]
     Indication: COLITIS ULCERATIVE
     Dosage: UNK
     Route: 065

REACTIONS (9)
  - CONDITION AGGRAVATED [None]
  - DRUG INEFFECTIVE [None]
  - FALL [None]
  - HYPOAESTHESIA [None]
  - MEDICATION RESIDUE [None]
  - MULTIPLE SCLEROSIS [None]
  - PRURITUS [None]
  - SWELLING [None]
  - WEIGHT INCREASED [None]
